FAERS Safety Report 9944983 (Version 1)
Quarter: 2014Q1

REPORT INFORMATION
  Report Type: Report from Study
  Country: US (occurrence: US)
  Receive Date: 20140303
  Receipt Date: 20140303
  Transmission Date: 20141002
  Serious: No
  Sender: FDA-Public Use
  Company Number: US-ABBVIE-13P-163-1053551-00

PATIENT
  Age: 57 Year
  Sex: Female

DRUGS (6)
  1. HUMIRA [Suspect]
     Indication: RHEUMATOID ARTHRITIS
     Dosage: FIRST DOSE ONLY
     Dates: start: 20130205
  2. ZOLOFT [Concomitant]
     Indication: DEPRESSION
  3. MELOXICAM [Concomitant]
     Indication: PRODUCT USED FOR UNKNOWN INDICATION
  4. METHOTREXATE [Concomitant]
     Indication: PRODUCT USED FOR UNKNOWN INDICATION
  5. AMLODIPINE [Concomitant]
     Indication: BLOOD PRESSURE
  6. 14 UNKNOWN VITAMINS [Concomitant]
     Indication: GASTRIC BYPASS

REACTIONS (1)
  - Rash macular [Not Recovered/Not Resolved]
